FAERS Safety Report 8116265-9 (Version None)
Quarter: 2012Q1

REPORT INFORMATION
  Report Type: 
  Country: None (occurrence: None)
  Receive Date: 20120206
  Receipt Date: 20120130
  Transmission Date: 20120608
  Serious: Yes (Other)
  Sender: FDA-Public Use
  Company Number: AU-B.I. PHARMACEUTICALS,INC./RIDGEFIELD-2012-AU-00124AU

PATIENT
  Sex: Female
  Weight: 58.3 kg

DRUGS (17)
  1. PANTOPRAZOLE [Concomitant]
     Dosage: 40 MG
  2. CRESTOR [Concomitant]
     Dosage: 20 MG
  3. LANOXIN [Concomitant]
     Dosage: 62.5 MCG
  4. LIPIDIL [Concomitant]
     Dosage: 145 MG
  5. PANADOL OSTEO [Concomitant]
     Dosage: 2660 MG
  6. ROCALTROL [Concomitant]
     Dosage: 0.25 MCG
  7. ZYLOPRIM [Concomitant]
     Dosage: 100 MG
  8. BICOR [Concomitant]
     Dosage: 10 MG
  9. HYDRALAZINE HCL [Concomitant]
     Dosage: 50 MG
  10. AVAPRO [Concomitant]
     Dosage: 150 MG
  11. LASIX [Concomitant]
     Dosage: 120 MG
  12. PRADAXA [Suspect]
     Indication: CEREBROVASCULAR ACCIDENT PROPHYLAXIS
     Dosage: 220 MG
     Dates: start: 20110901, end: 20120111
  13. PRADAXA [Suspect]
     Indication: ATRIAL FIBRILLATION
  14. FLUTICASONE PROPIONATE/SALMETEROL [Concomitant]
     Dosage: 250MCG/25MCG
  15. RAMIPRIL [Concomitant]
     Dosage: 5 MG
  16. NEO-B12 [Concomitant]
     Dosage: 1MG/ML
  17. TILADE [Concomitant]
     Dosage: 12 MCG

REACTIONS (1)
  - RENAL IMPAIRMENT [None]
